APPROVED DRUG PRODUCT: ACYCLOVIR
Active Ingredient: ACYCLOVIR
Strength: 400MG
Dosage Form/Route: TABLET;ORAL
Application: A074870 | Product #001
Applicant: ACTAVIS ELIZABETH LLC
Approved: Jun 5, 1997 | RLD: No | RS: No | Type: DISCN